FAERS Safety Report 24425537 (Version 1)
Quarter: 2024Q4

REPORT INFORMATION
  Report Type: Spontaneous
  Country: GB (occurrence: GB)
  Receive Date: 20241011
  Receipt Date: 20241011
  Transmission Date: 20250115
  Serious: Yes (Death)
  Sender: INTERCEPT PHARMACEUTICALS
  Company Number: GB-ADVANZ PHARMA-202403002696

PATIENT
  Sex: Female

DRUGS (2)
  1. OCALIVA [Suspect]
     Active Substance: OBETICHOLIC ACID
     Indication: Primary biliary cholangitis
     Dosage: 5 MG, QD (TAB 30)
     Route: 048
  2. OCALIVA [Suspect]
     Active Substance: OBETICHOLIC ACID
     Dosage: 5 MG, QOD (TAB 30)
     Route: 048

REACTIONS (3)
  - Death [Fatal]
  - Anger [Recovered/Resolved]
  - Adverse drug reaction [Recovered/Resolved]
